FAERS Safety Report 9306798 (Version 1)
Quarter: 2013Q2

REPORT INFORMATION
  Report Type: Spontaneous
  Country: PL (occurrence: PL)
  Receive Date: 20130523
  Receipt Date: 20130523
  Transmission Date: 20140414
  Serious: Yes (Other)
  Sender: FDA-Public Use
  Company Number: PL-VERTEX PHARMACEUTICALS INC-2013-006388

PATIENT
  Sex: 0

DRUGS (2)
  1. INCIVO [Suspect]
     Indication: HEPATITIS C
     Route: 048
  2. RIBAVIRIN [Suspect]
     Indication: PRODUCT USED FOR UNKNOWN INDICATION
     Dosage: DOSAGE FORM: UNKNOWN
     Route: 065

REACTIONS (7)
  - Mental disorder [Unknown]
  - Renal impairment [Unknown]
  - Anorectal disorder [Unknown]
  - Neutropenia [Unknown]
  - Thrombocytopenia [Unknown]
  - Rash [Unknown]
  - Anaemia [Unknown]
